FAERS Safety Report 7745365-8 (Version None)
Quarter: 2011Q3

REPORT INFORMATION
  Report Type: 
  Country: None (occurrence: None)
  Receive Date: 20110913
  Receipt Date: 20110902
  Transmission Date: 20111222
  Serious: Yes (Hospitalization)
  Sender: FDA-Public Use
  Company Number: PH-JNJFOC-20110606522

PATIENT
  Sex: Female
  Weight: 45 kg

DRUGS (10)
  1. GOLIMUMAB [Suspect]
     Route: 058
     Dates: start: 20110204
  2. PLACEBO [Suspect]
     Indication: RHEUMATOID ARTHRITIS
     Route: 047
     Dates: start: 20060916, end: 20080419
  3. FOLIC ACID [Concomitant]
     Route: 048
     Dates: start: 20060817
  4. PREDNISONE [Concomitant]
     Route: 048
     Dates: start: 20050809
  5. CALCIUM CARBONATE [Concomitant]
     Route: 048
     Dates: start: 20070501
  6. METHOTREXATE [Concomitant]
     Route: 048
     Dates: start: 20080801
  7. ASCORBIC ACID [Concomitant]
     Route: 048
     Dates: start: 20070501
  8. GOLIMUMAB [Suspect]
     Route: 058
     Dates: start: 20110522
  9. GOLIMUMAB [Suspect]
     Indication: RHEUMATOID ARTHRITIS
     Route: 058
     Dates: start: 20060914
  10. BONIVA [Concomitant]
     Route: 048
     Dates: start: 20060721

REACTIONS (2)
  - CHOLELITHIASIS [None]
  - TUBERCULOSIS GASTROINTESTINAL [None]
